FAERS Safety Report 5285309-4 (Version None)
Quarter: 2007Q2

REPORT INFORMATION
  Report Type: 
  Country: None (occurrence: None)
  Receive Date: 20070403
  Receipt Date: 20070326
  Transmission Date: 20071010
  Serious: Yes (Hospitalization)
  Sender: FDA-Public Use
  Company Number: JP-ROXANE LABORATORIES, INC-2007-BP-04202RO

PATIENT
  Age: 66 Year
  Sex: Female

DRUGS (10)
  1. METHOTREXATE [Suspect]
     Indication: ACUTE PROMYELOCYTIC LEUKAEMIA
     Dosage: 15 MG X 1 DOSE
     Route: 037
  2. PREDNISOLONE [Suspect]
     Indication: ACUTE PROMYELOCYTIC LEUKAEMIA
     Dosage: 10 MG X 1 DOSE
     Route: 037
  3. CYTARABINE [Suspect]
     Indication: ACUTE PROMYELOCYTIC LEUKAEMIA
     Dosage: 100 MG/M2 X 5 DAYS
  4. CYTARABINE [Suspect]
     Dosage: 200 MG/M2 X 5 DAYS
  5. CYTARABINE [Suspect]
     Dosage: 150 MG/M2 X 5 DAYS
  6. CYTARABINE [Suspect]
     Dosage: 40 MG X 1 DOSE
     Route: 037
  7. ALL-TRANS-RETINOIC ACID [Suspect]
     Indication: ACUTE PROMYELOCYTIC LEUKAEMIA
     Dosage: 45 MG/M2 X 1 DOSE
  8. IDARUBICIN HCL [Suspect]
     Indication: ACUTE PROMYELOCYTIC LEUKAEMIA
     Dosage: 12 MG/M2 X 3 DAYS
  9. MITOXANTRONE [Suspect]
     Indication: ACUTE PROMYELOCYTIC LEUKAEMIA
     Dosage: 7 MG/M2 X 3 DAYS
  10. DAUNORUBICIN HCL [Suspect]
     Indication: ACUTE PROMYELOCYTIC LEUKAEMIA
     Dosage: 40 MG/M2 X 3 DAYS

REACTIONS (6)
  - BLOOD OSMOLARITY ABNORMAL [None]
  - DEPRESSED LEVEL OF CONSCIOUSNESS [None]
  - FATIGUE [None]
  - HYPONATRAEMIA [None]
  - HYPOTHALAMO-PITUITARY DISORDER [None]
  - INAPPROPRIATE ANTIDIURETIC HORMONE SECRETION [None]
